FAERS Safety Report 20587167 (Version 1)
Quarter: 2022Q1

REPORT INFORMATION
  Report Type: Spontaneous
  Country: US (occurrence: None)
  Receive Date: 20220314
  Receipt Date: 20220314
  Transmission Date: 20220423
  Serious: Yes (Other)
  Sender: FDA-Public Use
  Company Number: US-SUPERNUS Pharmaceuticals, Inc.-SUP202203-000395

PATIENT
  Age: 10 Month
  Sex: Female

DRUGS (16)
  1. TOPIRAMATE [Suspect]
     Active Substance: TOPIRAMATE
     Indication: Partial seizures
     Dosage: 6 MG/KG
  2. TOPIRAMATE [Suspect]
     Active Substance: TOPIRAMATE
     Indication: Dysplasia
  3. CLONAZEPAM [Concomitant]
     Active Substance: CLONAZEPAM
     Indication: Partial seizures
  4. CLONAZEPAM [Concomitant]
     Active Substance: CLONAZEPAM
     Indication: Hemiparesis
  5. CLONAZEPAM [Concomitant]
     Active Substance: CLONAZEPAM
     Indication: Dysplasia
  6. LACOSAMIDE [Concomitant]
     Active Substance: LACOSAMIDE
     Indication: Partial seizures
     Dosage: NOT PROVIDED
  7. VIGABATRIN [Concomitant]
     Active Substance: VIGABATRIN
     Indication: Partial seizures
     Dosage: NOT PROVIDED
  8. DIAZEPAM [Concomitant]
     Active Substance: DIAZEPAM
     Indication: Partial seizures
     Dosage: NOT PROVIDED
  9. MIDAZOLAM [Concomitant]
     Active Substance: MIDAZOLAM
     Indication: Partial seizures
     Dosage: NOT PROVIDED
  10. FOSPHENYTOIN [Concomitant]
     Active Substance: FOSPHENYTOIN
     Indication: Partial seizures
     Dosage: NOT PROVIDED
  11. FOSPHENYTOIN [Concomitant]
     Active Substance: FOSPHENYTOIN
     Indication: Hemiparesis
  12. FOSPHENYTOIN [Concomitant]
     Active Substance: FOSPHENYTOIN
     Indication: Dysplasia
  13. PHENOBARBITAL [Concomitant]
     Active Substance: PHENOBARBITAL
     Indication: Partial seizures
     Dosage: NOT PROVIDED
  14. PHENYTOIN [Concomitant]
     Active Substance: PHENYTOIN
     Indication: Partial seizures
     Dosage: NOT PROVIDED
  15. PHENYTOIN [Concomitant]
     Active Substance: PHENYTOIN
     Indication: Hemiparesis
  16. PHENYTOIN [Concomitant]
     Active Substance: PHENYTOIN
     Indication: Dysplasia

REACTIONS (1)
  - Drug-induced liver injury [Unknown]
